FAERS Safety Report 10241449 (Version 1)
Quarter: 2014Q2

REPORT INFORMATION
  Report Type: Spontaneous
  Country: US (occurrence: None)
  Receive Date: 20140613
  Receipt Date: 20140613
  Transmission Date: 20141212
  Serious: Yes (Life-Threatening)
  Sender: FDA-Public Use
  Company Number: 1713747-2014-099971

PATIENT
  Sex: Male

DRUGS (15)
  1. DELFLEX [Suspect]
     Indication: PERITONEAL DIALYSIS
  2. LIBERTY CYCLER [Concomitant]
  3. TUBING [Concomitant]
  4. AMLODOPINE [Concomitant]
  5. OS-CA [Concomitant]
  6. CALCIUM CITRATE [Concomitant]
  7. CLONIDINE [Concomitant]
  8. LASIX [Concomitant]
  9. NEURONTIN [Concomitant]
  10. GLYBURIDE [Concomitant]
  11. HYDROCODONE-ACETAMINOPHEN [Concomitant]
  12. ASPIRIN [Concomitant]
  13. LEVIMIR [Concomitant]
  14. METOLAZONE [Concomitant]
  15. TOPRAL-XL [Concomitant]

REACTIONS (1)
  - Peritonitis [None]
